FAERS Safety Report 13659008 (Version 1)
Quarter: 2017Q2

REPORT INFORMATION
  Report Type: Spontaneous
  Country: US (occurrence: US)
  Receive Date: 20170615
  Receipt Date: 20170615
  Transmission Date: 20170830
  Serious: Yes (Hospitalization)
  Sender: FDA-Public Use
  Company Number: None

PATIENT
  Age: 58 Year
  Sex: Male

DRUGS (7)
  1. HARVONI [Suspect]
     Active Substance: LEDIPASVIR\SOFOSBUVIR
     Indication: CHRONIC HEPATITIS C
     Route: 048
  2. ISOSORB [Concomitant]
  3. XIFAXAN [Concomitant]
     Active Substance: RIFAXIMIN
  4. CIPROFLOXACN [Concomitant]
     Active Substance: CIPROFLOXACIN
  5. LACTULOSE. [Concomitant]
     Active Substance: LACTULOSE
  6. PRAVASTATIN. [Concomitant]
     Active Substance: PRAVASTATIN
  7. FUROSEMIDE. [Concomitant]
     Active Substance: FUROSEMIDE

REACTIONS (1)
  - Dyspnoea [None]

NARRATIVE: CASE EVENT DATE: 20170611
